FAERS Safety Report 8556017 (Version 2)
Quarter: 2013Q1

REPORT INFORMATION
  Report Type: Spontaneous
  Country: US (occurrence: US)
  Receive Date: 20120510
  Receipt Date: 20130104
  Transmission Date: 20140127
  Serious: Yes (Life-Threatening, Hospitalization)
  Sender: FDA-Public Use
  Company Number: US-BAYER-2012-043209

PATIENT
  Age: 20 Year
  Sex: Female

DRUGS (9)
  1. YAZ [Suspect]
  2. YASMIN [Suspect]
  3. OCELLA [Suspect]
  4. CIPRO [Concomitant]
     Indication: URINARY TRACT INFECTION
  5. FLAGYL [Concomitant]
     Indication: TRICHOMONIASIS
  6. VITAMIN D [Concomitant]
     Indication: VITAMIN D DEFICIENCY
  7. IRON [Concomitant]
  8. FOLATE SODIUM [Concomitant]
  9. MULTIVITAMINS [Concomitant]

REACTIONS (7)
  - Pulmonary embolism [None]
  - Injury [None]
  - Emotional distress [None]
  - Pain [None]
  - General physical health deterioration [None]
  - Anxiety [None]
  - Anhedonia [None]
